FAERS Safety Report 7631293-5 (Version None)
Quarter: 2011Q3

REPORT INFORMATION
  Report Type: 
  Country: None (occurrence: None)
  Receive Date: 20110725
  Receipt Date: 20110712
  Transmission Date: 20111222
  Serious: Yes (Hospitalization, Other)
  Sender: FDA-Public Use
  Company Number: CA-US-EMD SERONO, INC.-7034742

PATIENT
  Sex: Male

DRUGS (8)
  1. ASCORBIC ACID [Concomitant]
  2. FABULAX FIBER [Concomitant]
  3. VITAMIN D [Concomitant]
  4. GLUCOSAMINE [Concomitant]
  5. REBIF [Suspect]
     Indication: RELAPSING-REMITTING MULTIPLE SCLEROSIS
     Route: 058
     Dates: start: 20080701
  6. ALLGRRENS (ALLGREENS) [Concomitant]
  7. FLAX SEED [Concomitant]
  8. VITAMIN B-12 [Concomitant]

REACTIONS (3)
  - DUODENAL ULCER PERFORATION [None]
  - INJECTION SITE PAIN [None]
  - VENOUS INSUFFICIENCY [None]
